FAERS Safety Report 5689740-4 (Version None)
Quarter: 2008Q1

REPORT INFORMATION
  Report Type: 
  Country: None (occurrence: None)
  Receive Date: 20080328
  Receipt Date: 20080318
  Transmission Date: 20080703
  Serious: Yes (Hospitalization, Other)
  Sender: FDA-Public Use
  Company Number: DSU-2008-00404

PATIENT
  Age: 55 Year
  Sex: Female
  Weight: 108.8633 kg

DRUGS (6)
  1. BENICAR [Suspect]
     Indication: HYPERTENSION
     Dosage: 20 MG(20 MG, QD), PER ORAL
     Route: 049
     Dates: start: 20070601, end: 20080223
  2. BENICAR [Suspect]
     Indication: HYPERTENSION
     Dosage: 20 MG(20 MG, QD), PER ORAL
     Route: 049
     Dates: start: 20080225
  3. BENICAR HCT (HYDROCHLOROTHIAZIDE, OLMESARTAN MEDOXOMIL)(TABLET)(HYDROC [Suspect]
     Indication: HYPERTENSION
     Dosage: 20/12.5 MG (QD), PER ORAL
     Route: 048
     Dates: start: 20080224, end: 20080224
  4. BABY ASPIRIN (ACETYLSALICYLIC ACID)(80 MILLIGRAM, TABLET)(ACETYLSALICY [Concomitant]
  5. LOPRESSOR(METOPROLOL TARTRATE)(25 MILLIGRAM, TABLET)(MFTOPROLOL TARTRA [Concomitant]
  6. ZOCOR (SIMVASTATIN)(10 MILLIGRAM, TABLET) (SIMVASTATIN) [Concomitant]

REACTIONS (6)
  - BLOOD GLUCOSE FLUCTUATION [None]
  - DIABETES MELLITUS [None]
  - HEADACHE [None]
  - LOSS OF CONSCIOUSNESS [None]
  - PRURITUS [None]
  - RASH [None]
